FAERS Safety Report 18438080 (Version 3)
Quarter: 2021Q4

REPORT INFORMATION
  Report Type: Spontaneous
  Country: None (occurrence: US)
  Receive Date: 20201029
  Receipt Date: 20211122
  Transmission Date: 20220304
  Serious: No
  Sender: FDA-Public Use
  Company Number: US-AKCEA THERAPEUTICS-2020IS001420

PATIENT
  Age: 65 Year
  Sex: Female

DRUGS (2)
  1. TEGSEDI [Suspect]
     Active Substance: INOTERSEN SODIUM
     Indication: Hereditary neuropathic amyloidosis
     Route: 058
     Dates: start: 20190321
  2. DEVICE [Suspect]
     Active Substance: DEVICE

REACTIONS (8)
  - Nitrite urine present [Unknown]
  - Bacterial test positive [Unknown]
  - Platelet count decreased [Unknown]
  - Aspartate aminotransferase increased [Unknown]
  - Alanine aminotransferase increased [Unknown]
  - Urinary sediment present [Unknown]
  - Urine abnormality [Unknown]
  - Crystal urine present [Unknown]

NARRATIVE: CASE EVENT DATE: 20200101
